FAERS Safety Report 13998329 (Version 1)
Quarter: 2017Q3

REPORT INFORMATION
  Report Type: Report from Study
  Country: FR (occurrence: FR)
  Receive Date: 20170921
  Receipt Date: 20170921
  Transmission Date: 20171128
  Serious: Yes (Hospitalization)
  Sender: FDA-Public Use
  Company Number: FR-JNJFOC-20170916379

PATIENT
  Age: 15 Year
  Sex: Male
  Weight: 38.4 kg

DRUGS (10)
  1. AZATHIOPRINE. [Concomitant]
     Active Substance: AZATHIOPRINE
     Route: 065
  2. KETOPROFEN. [Concomitant]
     Active Substance: KETOPROFEN
     Route: 065
  3. PHLOROGLUCINOL [Concomitant]
     Active Substance: PHLOROGLUCINOL
     Route: 065
  4. TACROLIMUS. [Suspect]
     Active Substance: TACROLIMUS
     Indication: PRODUCT USED FOR UNKNOWN INDICATION
     Route: 065
     Dates: start: 201706
  5. HUMIRA [Concomitant]
     Active Substance: ADALIMUMAB
     Route: 065
  6. NALBUPHINE [Concomitant]
     Active Substance: NALBUPHINE
     Route: 065
  7. ALFUZOSINE [Concomitant]
     Active Substance: ALFUZOSIN HYDROCHLORIDE
     Route: 065
  8. PARACETAMOL [Concomitant]
     Active Substance: ACETAMINOPHEN
     Route: 065
  9. REMICADE [Suspect]
     Active Substance: INFLIXIMAB
     Indication: CROHN^S DISEASE
     Route: 042
     Dates: start: 20131119, end: 20150417
  10. AZATHIOPRINE. [Concomitant]
     Active Substance: AZATHIOPRINE
     Route: 065
     Dates: start: 201706

REACTIONS (1)
  - Device related infection [Recovered/Resolved]

NARRATIVE: CASE EVENT DATE: 20170622
